FAERS Safety Report 4674539-8 (Version None)
Quarter: 2005Q2

REPORT INFORMATION
  Report Type: 
  Country: None (occurrence: None)
  Receive Date: 20050526
  Receipt Date: 20041102
  Transmission Date: 20051028
  Serious: Yes (Disabling)
  Sender: FDA-Public Use
  Company Number: US-ROCHE-385470

PATIENT
  Age: 22 Year
  Sex: Female
  Weight: 45.4 kg

DRUGS (1)
  1. ACCUTANE [Suspect]
     Indication: ACNE
     Route: 048
     Dates: start: 19980515, end: 19981015

REACTIONS (38)
  - ABSCESS [None]
  - ARTHRALGIA [None]
  - AUTOIMMUNE DISORDER [None]
  - BLOOD GLUCOSE INCREASED [None]
  - CHRONIC FATIGUE SYNDROME [None]
  - COLITIS [None]
  - COLITIS ULCERATIVE [None]
  - CROHN'S DISEASE [None]
  - DEHYDRATION [None]
  - DRUG HYPERSENSITIVITY [None]
  - DYSPEPSIA [None]
  - EAR INFECTION [None]
  - FAECES DISCOLOURED [None]
  - GASTROINTESTINAL DISORDER [None]
  - HAEMATOCHEZIA [None]
  - HAEMOGLOBIN DECREASED [None]
  - HEADACHE [None]
  - HYPOKALAEMIA [None]
  - INFLAMMATORY BOWEL DISEASE [None]
  - INSOMNIA [None]
  - INTESTINAL HAEMORRHAGE [None]
  - LEUKOCYTOSIS [None]
  - MOOD ALTERED [None]
  - MOUTH ULCERATION [None]
  - MULTI-ORGAN DISORDER [None]
  - MUSCLE INJURY [None]
  - MYOCARDITIS [None]
  - NAUSEA [None]
  - NIGHT BLINDNESS [None]
  - OEDEMA PERIPHERAL [None]
  - PERICARDITIS [None]
  - PYREXIA [None]
  - RECTAL HAEMORRHAGE [None]
  - SMALL INTESTINAL OBSTRUCTION [None]
  - SOMNOLENCE [None]
  - STOMATITIS [None]
  - SYSTEMIC LUPUS ERYTHEMATOSUS [None]
  - VOMITING [None]
